FAERS Safety Report 25153072 (Version 2)
Quarter: 2025Q2

REPORT INFORMATION
  Report Type: Spontaneous
  Country: US (occurrence: US)
  Receive Date: 20250403
  Receipt Date: 20250425
  Transmission Date: 20250716
  Serious: Yes (Other)
  Sender: CHEPLAPHARM
  Company Number: US-ASTRAZENECA-202503USA017108US

PATIENT
  Sex: Female

DRUGS (14)
  1. QUETIAPINE [Suspect]
     Active Substance: QUETIAPINE
  2. QUETIAPINE [Suspect]
     Active Substance: QUETIAPINE
  3. ALBUTEROL [Concomitant]
     Active Substance: ALBUTEROL
  4. ATIVAN [Concomitant]
     Active Substance: LORAZEPAM
  5. DEXILANT [Concomitant]
     Active Substance: DEXLANSOPRAZOLE
  6. FENTANYL [Concomitant]
     Active Substance: FENTANYL
  7. LAMICTAL [Concomitant]
     Active Substance: LAMOTRIGINE
  8. OXYCODONE [Concomitant]
     Active Substance: OXYCODONE
  9. RELISTOR [Concomitant]
     Active Substance: METHYLNALTREXONE BROMIDE
  10. VOLTAREN [Concomitant]
     Active Substance: DICLOFENAC SODIUM
  11. ZOLOFT [Concomitant]
     Active Substance: SERTRALINE HYDROCHLORIDE
  12. ZOFRAN [Concomitant]
     Active Substance: ONDANSETRON HYDROCHLORIDE
  13. METHOCARBAMOL [Concomitant]
     Active Substance: METHOCARBAMOL
  14. REQUIP [Concomitant]
     Active Substance: ROPINIROLE HYDROCHLORIDE

REACTIONS (16)
  - Bipolar disorder [Unknown]
  - Depressed mood [Unknown]
  - Streptococcal infection [Unknown]
  - Steroid activity [Unknown]
  - Pruritus [Unknown]
  - Dizziness [Unknown]
  - Restless legs syndrome [Unknown]
  - Pain [Unknown]
  - Gastrooesophageal reflux disease [Unknown]
  - Ulcer [Unknown]
  - Anxiety [Unknown]
  - Insomnia [Unknown]
  - Muscle spasms [Unknown]
  - Parkinsonism [Unknown]
  - Wheezing [Unknown]
  - Product substitution issue [Unknown]
